FAERS Safety Report 6754560-6 (Version None)
Quarter: 2010Q2

REPORT INFORMATION
  Report Type: 
  Country: None (occurrence: None)
  Receive Date: 20100603
  Receipt Date: 20100601
  Transmission Date: 20101027
  Serious: Yes (Hospitalization)
  Sender: FDA-Public Use
  Company Number: CHPA2010US09331

PATIENT
  Age: 90 Year
  Sex: Female

DRUGS (1)
  1. ASCRIPTIN BUFFERED MAX STRENGTH CAPLETS (NCH) [Suspect]
     Indication: PAIN
     Dosage: 500 MG, QD
     Route: 048

REACTIONS (3)
  - DEHYDRATION [None]
  - DRUG INEFFECTIVE FOR UNAPPROVED INDICATION [None]
  - INTENTIONAL DRUG MISUSE [None]
